FAERS Safety Report 10757351 (Version 1)
Quarter: 2015Q1

REPORT INFORMATION
  Report Type: Spontaneous
  Country: US (occurrence: None)
  Receive Date: 20150130
  Receipt Date: 20150130
  Transmission Date: 20150721
  Serious: No
  Sender: FDA-Public Use
  Company Number: 2015-00009

PATIENT
  Age: 43 Year
  Sex: Male

DRUGS (4)
  1. NAPROXEN. [Concomitant]
     Active Substance: NAPROXEN
  2. ZICAM COLD REMEDY RAPIDMELTS [Suspect]
     Active Substance: ZINC ACETATE ANHYDROUS\ZINC GLUCONATE
     Indication: NASOPHARYNGITIS
     Route: 048
     Dates: start: 20141208
  3. 5-HOUR ENERGY DRINK [Suspect]
     Active Substance: DIETARY SUPPLEMENT
     Indication: ASTHENIA
     Dosage: 1 BOTTLE ORALLY X1?
     Route: 048
     Dates: start: 20141208
  4. MULTIVITAMIN [Concomitant]
     Active Substance: VITAMINS

REACTIONS (1)
  - Ageusia [None]

NARRATIVE: CASE EVENT DATE: 20141208
